FAERS Safety Report 5260230-6 (Version None)
Quarter: 2007Q1

REPORT INFORMATION
  Report Type: 
  Country: None (occurrence: None)
  Receive Date: 20070309
  Receipt Date: 20060516
  Transmission Date: 20070707
  Serious: No
  Sender: FDA-Public Use
  Company Number: US-GLAXOSMITHKLINE-A0605526A

PATIENT
  Age: 61 Year
  Sex: Female

DRUGS (3)
  1. EQUATE NICOTINE GUM 2MG [Suspect]
  2. NICODERM CQ [Suspect]
  3. NICODERM CQ [Suspect]

REACTIONS (2)
  - NICOTINE DEPENDENCE [None]
  - STOMACH DISCOMFORT [None]
